FAERS Safety Report 10569838 (Version 2)
Quarter: 2014Q4

REPORT INFORMATION
  Report Type: Report from Study
  Country: US (occurrence: US)
  Receive Date: 20141107
  Receipt Date: 20141128
  Transmission Date: 20150529
  Serious: Yes (Hospitalization)
  Sender: FDA-Public Use
  Company Number: US-BRISTOL-MYERS SQUIBB COMPANY-21559117

PATIENT
  Age: 54 Year
  Sex: Female
  Weight: 58.3 kg

DRUGS (8)
  1. AMLODIPINE [Concomitant]
     Active Substance: AMLODIPINE BESYLATE
  2. GEMCITABINE [Suspect]
     Active Substance: GEMCITABINE\GEMCITABINE HYDROCHLORIDE
     Indication: PANCREATIC CARCINOMA
     Dosage: RECENT DOSE:27OCT14?C1W2?500MG/M2:WEEKLY
     Route: 042
     Dates: start: 20141020
  3. HYDROMORPHONE [Concomitant]
     Active Substance: HYDROMORPHONE
  4. LORAZEPAM. [Concomitant]
     Active Substance: LORAZEPAM
  5. MORPHINE [Concomitant]
     Active Substance: MORPHINE
  6. IPILIMUMAB [Suspect]
     Active Substance: IPILIMUMAB
     Indication: PANCREATIC CARCINOMA
     Dosage: C1W1?3MGLKG:3/WEEKS
     Route: 042
     Dates: start: 20141020, end: 20141110
  7. ESOMEPRAZOLE [Concomitant]
     Active Substance: ESOMEPRAZOLE
  8. ZOFRAN [Concomitant]
     Active Substance: ONDANSETRON HYDROCHLORIDE

REACTIONS (4)
  - Nausea [Recovered/Resolved]
  - Abdominal pain [Recovered/Resolved]
  - Vomiting [Recovered/Resolved]
  - Gastric haemorrhage [Recovered/Resolved]

NARRATIVE: CASE EVENT DATE: 20141023
